FAERS Safety Report 20772536 (Version 1)
Quarter: 2022Q2

REPORT INFORMATION
  Report Type: Spontaneous
  Country: FR (occurrence: FR)
  Receive Date: 20220502
  Receipt Date: 20220502
  Transmission Date: 20220721
  Serious: Yes (Hospitalization)
  Sender: FDA-Public Use
  Company Number: None

PATIENT
  Age: 59 Year
  Sex: Male
  Weight: 89.8 kg

DRUGS (2)
  1. BETAMETHASONE [Suspect]
     Active Substance: BETAMETHASONE
     Indication: Ear infection
     Dosage: 6 TABLETS PER DAY (FORMULATION: SCORED DISPERSIBLE TABLET)
     Route: 048
     Dates: start: 20220401, end: 20220405
  2. PRISTINAMYCIN [Suspect]
     Active Substance: PRISTINAMYCIN
     Indication: Ear infection
     Dosage: 2 TABLETS MORNING AND EVENING (FORMULATION: SCORED FILM COATED TABLET)
     Route: 048
     Dates: start: 20220401, end: 20220405

REACTIONS (1)
  - Pancreatitis acute [Recovering/Resolving]

NARRATIVE: CASE EVENT DATE: 20220407
